FAERS Safety Report 17867606 (Version 1)
Quarter: 2020Q2

REPORT INFORMATION
  Report Type: Spontaneous
  Country: US (occurrence: US)
  Receive Date: 20200605
  Receipt Date: 20200605
  Transmission Date: 20200714
  Serious: Yes (Life-Threatening, Hospitalization)
  Sender: FDA-Public Use
  Company Number: US-JNJFOC-20200536289

PATIENT
  Age: 17 Year
  Sex: Female

DRUGS (1)
  1. DIPHENHYDRAMINE HYDROCHLORIDE. [Suspect]
     Active Substance: DIPHENHYDRAMINE HYDROCHLORIDE
     Indication: PRODUCT USED FOR UNKNOWN INDICATION
     Dosage: 25 MG (TOTAL = 7 G).
     Route: 048

REACTIONS (7)
  - Hypotension [Recovering/Resolving]
  - Ventricular tachycardia [Recovering/Resolving]
  - Supraventricular tachycardia [Recovering/Resolving]
  - Intentional overdose [Recovering/Resolving]
  - Ventricular extrasystoles [Recovering/Resolving]
  - Seizure [Recovering/Resolving]
  - Electrocardiogram QT prolonged [Recovering/Resolving]
